FAERS Safety Report 8661027 (Version 13)
Quarter: 2015Q1

REPORT INFORMATION
  Report Type: Spontaneous
  Country: CA (occurrence: CA)
  Receive Date: 20120711
  Receipt Date: 20150209
  Transmission Date: 20150721
  Serious: Yes (Other)
  Sender: FDA-Public Use
  Company Number: CA-ROCHE-1085962

PATIENT
  Age: 67 Year
  Sex: Female

DRUGS (3)
  1. AVELOX [Concomitant]
     Active Substance: MOXIFLOXACIN HYDROCHLORIDE
  2. XOLAIR [Suspect]
     Active Substance: OMALIZUMAB
     Indication: ASTHMA
     Route: 058
     Dates: start: 20120509
  3. XOLAIR [Suspect]
     Active Substance: OMALIZUMAB
     Route: 058
     Dates: start: 20130917

REACTIONS (18)
  - Pulmonary congestion [Not Recovered/Not Resolved]
  - Nasopharyngitis [Unknown]
  - Fall [Unknown]
  - Skeletal injury [Unknown]
  - Hypopnoea [Unknown]
  - Injection site pain [Unknown]
  - Pyrexia [Unknown]
  - Malaise [Unknown]
  - Bronchitis [Not Recovered/Not Resolved]
  - Asthma [Not Recovered/Not Resolved]
  - Cough [Unknown]
  - Pneumonia [Recovered/Resolved]
  - Wheezing [Unknown]
  - Musculoskeletal chest pain [Unknown]
  - Headache [Unknown]
  - Influenza [Unknown]
  - Head injury [Unknown]
  - Limb injury [Unknown]

NARRATIVE: CASE EVENT DATE: 20120618
